FAERS Safety Report 4383454-9 (Version None)
Quarter: 2004Q2

REPORT INFORMATION
  Report Type: 
  Country: None (occurrence: None)
  Receive Date: 20040622
  Receipt Date: 20040622
  Transmission Date: 20050107
  Serious: Yes (Death)
  Sender: FDA-Public Use
  Company Number: None

PATIENT
  Age: 55 Year
  Sex: Male
  Weight: 98.4306 kg

DRUGS (9)
  1. GEMCITABINE [Suspect]
     Indication: PANCREATIC CARCINOMA
     Dosage: 2100 MG 2040 MG 2100 MG
     Dates: start: 20040602
  2. GEMCITABINE [Suspect]
     Indication: PANCREATIC CARCINOMA
     Dosage: 2100 MG 2040 MG 2100 MG
     Dates: start: 20040609
  3. GEMCITABINE [Suspect]
     Indication: PANCREATIC CARCINOMA
     Dosage: 2100 MG 2040 MG 2100 MG
     Dates: start: 20040616
  4. ANZEMET [Concomitant]
  5. MIRALAX [Concomitant]
  6. LOVENOX [Concomitant]
  7. INNOHEP [Concomitant]
  8. DURAGESIC [Concomitant]
  9. LASIX [Concomitant]

REACTIONS (3)
  - CARDIO-RESPIRATORY ARREST [None]
  - COMA [None]
  - DYSPNOEA [None]
